FAERS Safety Report 13718098 (Version 1)
Quarter: 2017Q3

REPORT INFORMATION
  Report Type: Spontaneous
  Country: US (occurrence: US)
  Receive Date: 20170705
  Receipt Date: 20170705
  Transmission Date: 20171127
  Serious: No
  Sender: FDA-Public Use
  Company Number: US-CUMBERLAND PHARMACEUTICALS INC.-2022921

PATIENT
  Sex: Female

DRUGS (1)
  1. KRISTALOSE [Suspect]
     Active Substance: LACTULOSE
     Indication: DIAGNOSTIC PROCEDURE
     Route: 048
     Dates: start: 20170507, end: 20170507

REACTIONS (1)
  - Diarrhoea [Unknown]
